FAERS Safety Report 15485931 (Version 1)
Quarter: 2018Q4

REPORT INFORMATION
  Report Type: Report from Study
  Country: None (occurrence: US)
  Receive Date: 20181011
  Receipt Date: 20181011
  Transmission Date: 20190205
  Serious: Yes (Other)
  Sender: FDA-Public Use
  Company Number: US-ABBVIE-18K-163-2510683-00

PATIENT
  Sex: Female

DRUGS (1)
  1. HUMIRA [Suspect]
     Active Substance: ADALIMUMAB
     Indication: PSORIATIC ARTHROPATHY
     Route: 058

REACTIONS (5)
  - Hysterectomy [Recovering/Resolving]
  - Red blood cell sedimentation rate decreased [Unknown]
  - Muscle spasms [Not Recovered/Not Resolved]
  - Blood creatinine decreased [Unknown]
  - Weight decreased [Unknown]
